FAERS Safety Report 8340512-1 (Version None)
Quarter: 2012Q2

REPORT INFORMATION
  Report Type: 
  Country: None (occurrence: None)
  Receive Date: 20120507
  Receipt Date: 20120430
  Transmission Date: 20120825
  Serious: Yes (Hospitalization)
  Sender: FDA-Public Use
  Company Number: US-BAYER-2012-003824

PATIENT
  Age: 33 Year
  Sex: Female
  Weight: 47.619 kg

DRUGS (13)
  1. YAZ [Suspect]
     Indication: ACNE
  2. DROSPIRENONE AND ETHINYL ESTRADIOL [Suspect]
     Indication: CONTRACEPTION
     Dosage: UNK
     Dates: start: 20050101
  3. ANTIBIOTICS [Concomitant]
     Indication: INFECTION
  4. FLEXERIL [Concomitant]
     Dosage: 5 MG, HS
     Dates: start: 20060211
  5. HERBAL [Concomitant]
     Dosage: UNK
     Dates: start: 20060211
  6. YASMIN [Suspect]
     Indication: CONTRACEPTION
     Dosage: UNK
     Dates: start: 20050101
  7. AZACTAM [Concomitant]
  8. YASMIN [Suspect]
     Indication: ACNE
  9. ZYRTEC [Concomitant]
     Indication: MULTIPLE ALLERGIES
     Dosage: 10 MG, UNK
  10. TYLENOL (CAPLET) [Concomitant]
  11. YAZ [Suspect]
     Indication: CONTRACEPTION
     Dosage: UNK
     Dates: start: 20050101
  12. FLAGYL [Concomitant]
  13. DROSPIRENONE AND ETHINYL ESTRADIOL [Suspect]
     Indication: ACNE

REACTIONS (11)
  - PAIN [None]
  - INJURY [None]
  - ANXIETY [None]
  - HEADACHE [None]
  - CHOLECYSTITIS CHRONIC [None]
  - MYALGIA [None]
  - PSYCHOLOGICAL TRAUMA [None]
  - FEAR [None]
  - EMOTIONAL DISTRESS [None]
  - BACK PAIN [None]
  - CHOLELITHIASIS [None]
